FAERS Safety Report 19686841 (Version 4)
Quarter: 2022Q4

REPORT INFORMATION
  Report Type: Spontaneous
  Country: FR (occurrence: FR)
  Receive Date: 20210811
  Receipt Date: 20221027
  Transmission Date: 20230113
  Serious: Yes (Life-Threatening, Hospitalization, Other)
  Sender: FDA-Public Use
  Company Number: None

PATIENT
  Age: 1 Day
  Sex: Female

DRUGS (18)
  1. CEFTAZIDIME [Suspect]
     Active Substance: CEFTAZIDIME
     Indication: Infection
     Dosage: 5 GRAM, BID (5 G/12 H)
     Route: 064
     Dates: start: 20200119, end: 20210127
  2. OMEPRAZOLE [Suspect]
     Active Substance: OMEPRAZOLE
     Indication: Prophylaxis
     Dosage: 80 MILLIGRAM (40 MG/12 H )
     Route: 064
     Dates: end: 20210202
  3. CREON [Suspect]
     Active Substance: PANCRELIPASE AMYLASE\PANCRELIPASE LIPASE\PANCRELIPASE PROTEASE
     Indication: Pancreatic failure
     Dosage: UNK (11-16 CAPS DAILY)
     Route: 064
     Dates: end: 20210202
  4. CREON [Suspect]
     Active Substance: PANCRELIPASE AMYLASE\PANCRELIPASE LIPASE\PANCRELIPASE PROTEASE
     Dosage: UNK
     Route: 064
  5. CEFTAZIDIME [Suspect]
     Active Substance: CEFTAZIDIME
     Indication: Product used for unknown indication
     Dosage: UNK
     Route: 064
     Dates: start: 20200922, end: 20201007
  6. AZACTAM [Suspect]
     Active Substance: AZTREONAM
     Indication: Prophylaxis
     Dosage: 6 GRAM
     Route: 064
     Dates: start: 20210127, end: 20210202
  7. AZACTAM [Suspect]
     Active Substance: AZTREONAM
     Dosage: UNK
     Route: 064
  8. AZACTAM [Suspect]
     Active Substance: AZTREONAM
     Dosage: 1 GRAM (1 GRAM)
     Route: 064
  9. .ALPHA.-TOCOPHEROL ACETATE, D- [Suspect]
     Active Substance: .ALPHA.-TOCOPHEROL ACETATE, D-
     Indication: Product used for unknown indication
     Dosage: UNK
     Route: 064
  10. BRICANYL [Suspect]
     Active Substance: TERBUTALINE SULFATE
     Indication: Product used for unknown indication
     Dosage: 2 INHALATIONS IF NEEDED
     Route: 064
  11. CALCIUM PHOSPHATE, DIBASIC, ANHYDROUS\MAGNESIUM GLYCEROPHOSPHATE\PHOSP [Suspect]
     Active Substance: CALCIUM PHOSPHATE, DIBASIC, ANHYDROUS\MAGNESIUM GLYCEROPHOSPHATE\PHOSPHORIC ACID\SODIUM PHOSPHATE, D
     Indication: Product used for unknown indication
     Dosage: 200 DROP
     Route: 064
  12. TRIKAFTA [Suspect]
     Active Substance: ELEXACAFTOR\IVACAFTOR\TEZACAFTOR
     Indication: Cystic fibrosis
     Dosage: UNK
     Route: 064
     Dates: start: 2020, end: 20210202
  13. ELEXACAFTOR\IVACAFTOR\TEZACAFTOR [Suspect]
     Active Substance: ELEXACAFTOR\IVACAFTOR\TEZACAFTOR
     Indication: Cystic fibrosis
     Dosage: UNK (UNK FREQ)
     Route: 064
     Dates: start: 2020, end: 20210202
  14. KALYDECO [Suspect]
     Active Substance: IVACAFTOR
     Indication: Cystic fibrosis
     Dosage: UNK
     Route: 064
     Dates: start: 2020, end: 20210202
  15. PANCREATIN [Concomitant]
     Active Substance: PANCRELIPASE
     Dosage: UNK (160, 000 UI/D)
     Route: 064
  16. AZTREONAM [Concomitant]
     Active Substance: AZTREONAM
     Dosage: 6 GRAM, QD (6G/D)
     Route: 064
  17. Phosphates [Concomitant]
     Dosage: UNK
     Route: 064
  18. INSULIN NOS [Concomitant]
     Active Substance: INSULIN NOS
     Dosage: 200 DROPS (1/12 MILLILITRE)
     Route: 064

REACTIONS (3)
  - Pulmonary haemorrhage [Recovered/Resolved]
  - Neonatal respiratory distress syndrome [Unknown]
  - Foetal exposure during pregnancy [Recovered/Resolved]

NARRATIVE: CASE EVENT DATE: 20210202
